FAERS Safety Report 15802218 (Version 1)
Quarter: 2019Q1

REPORT INFORMATION
  Report Type: Spontaneous
  Country: US (occurrence: US)
  Receive Date: 20190109
  Receipt Date: 20190109
  Transmission Date: 20190417
  Serious: Yes (Death, Hospitalization)
  Sender: FDA-Public Use
  Company Number: US-JNJFOC-20190100954

PATIENT
  Age: 40 Year
  Sex: Female

DRUGS (5)
  1. DIPHENHYDRAMINE. [Suspect]
     Active Substance: DIPHENHYDRAMINE
     Indication: SUICIDE ATTEMPT
     Route: 048
  2. OMEPRAZOLE. [Suspect]
     Active Substance: OMEPRAZOLE
     Indication: SUICIDE ATTEMPT
     Route: 048
  3. BUMETANIDE. [Suspect]
     Active Substance: BUMETANIDE
     Indication: SUICIDE ATTEMPT
     Route: 048
  4. CARVEDILOL. [Suspect]
     Active Substance: CARVEDILOL
     Indication: SUICIDE ATTEMPT
     Route: 048
  5. AMLODIPINE [Suspect]
     Active Substance: AMLODIPINE BESYLATE
     Indication: SUICIDE ATTEMPT
     Route: 048

REACTIONS (1)
  - Toxicity to various agents [Fatal]
